FAERS Safety Report 5719753-5 (Version None)
Quarter: 2008Q2

REPORT INFORMATION
  Report Type: 
  Country: None (occurrence: None)
  Receive Date: 20080428
  Receipt Date: 20080418
  Transmission Date: 20081010
  Serious: Yes (Other)
  Sender: FDA-Public Use
  Company Number: IT-PURDUE-DEU_2008_0004221

PATIENT
  Age: 41 Year
  Sex: Female

DRUGS (8)
  1. MORPHINE SULFATE [Suspect]
     Indication: EPIDURAL ANAESTHESIA
     Dosage: 3 MG, SINGLE
     Route: 008
  2. LEVOBUPIVACAINE [Suspect]
     Indication: EPIDURAL ANAESTHESIA
     Dosage: 10 ML, SINGLE
     Route: 008
  3. METOCLOPRAMIDE [Suspect]
  4. PARACETAMOL [Concomitant]
  5. BUPIVACAINE [Suspect]
     Indication: SPINAL ANAESTHESIA
     Dosage: 5 MG, SINGLE
     Route: 008
  6. SUFENTANIL CITRATE [Suspect]
     Indication: SPINAL ANAESTHESIA
     Dosage: 5 MCG, SINGLE
     Route: 008
  7. LIDOCAINE AND EPINEPHRINE [Suspect]
     Indication: SPINAL ANAESTHESIA
     Dosage: 9 ML, SINGLE
     Route: 008
  8. SODIUM BICARBONATE [Concomitant]

REACTIONS (9)
  - ASTHENIA [None]
  - COLD SWEAT [None]
  - FEELING HOT [None]
  - HYPERHIDROSIS [None]
  - HYPOTHERMIA [None]
  - NAUSEA [None]
  - SEDATION [None]
  - TREMOR [None]
  - VOMITING [None]
